FAERS Safety Report 10206933 (Version 2)
Quarter: 2014Q2

REPORT INFORMATION
  Report Type: Spontaneous
  Country: CA (occurrence: CA)
  Receive Date: 20140530
  Receipt Date: 20140530
  Transmission Date: 20141212
  Serious: Yes (Hospitalization)
  Sender: FDA-Public Use
  Company Number: CA-AMGEN-CANSP2014034089

PATIENT
  Age: 87 Year
  Sex: Female

DRUGS (1)
  1. SENSIPAR [Suspect]
     Indication: HYPERPARATHYROIDISM SECONDARY
     Dosage: 60 MUG, QD
     Route: 065
     Dates: start: 20071006

REACTIONS (3)
  - Confusional state [Not Recovered/Not Resolved]
  - Abasia [Not Recovered/Not Resolved]
  - Hypotension [Not Recovered/Not Resolved]
